FAERS Safety Report 9673988 (Version 2)
Quarter: 2013Q4

REPORT INFORMATION
  Report Type: Spontaneous
  Country: US (occurrence: US)
  Receive Date: 20131106
  Receipt Date: 20131106
  Transmission Date: 20140711
  Serious: No
  Sender: FDA-Public Use
  Company Number: US-AMGEN-USASP2013070868

PATIENT
  Sex: Male
  Weight: 124.72 kg

DRUGS (4)
  1. ENBREL [Suspect]
     Indication: PRODUCT USED FOR UNKNOWN INDICATION
     Dosage: 50 MG, QWK
     Route: 058
     Dates: start: 201110
  2. VITAMIN D                          /00107901/ [Concomitant]
     Indication: HYPOVITAMINOSIS
     Dosage: 1000 IU, UNK
  3. VITAMIN D                          /00107901/ [Concomitant]
     Dosage: 1.25 MG, QWK
     Route: 048
  4. ROBAXIN [Concomitant]
     Indication: MUSCLE SPASMS
     Dosage: 500 MG, QD
     Route: 048

REACTIONS (1)
  - Myalgia [Unknown]
